FAERS Safety Report 24154053 (Version 1)
Quarter: 2024Q3

REPORT INFORMATION
  Report Type: Spontaneous
  Country: AU (occurrence: AU)
  Receive Date: 20240730
  Receipt Date: 20240730
  Transmission Date: 20241016
  Serious: Yes (Other)
  Sender: EISAI
  Company Number: AU-Eisai-EC-2024-170791

PATIENT
  Age: 46 Year
  Sex: Female

DRUGS (2)
  1. LENVATINIB [Suspect]
     Active Substance: LENVATINIB
     Indication: Product used for unknown indication
     Dosage: DOSE AND FREQUENCY UNKNOWN
     Route: 048
  2. PEMBROLIZUMAB [Suspect]
     Active Substance: PEMBROLIZUMAB
     Indication: Product used for unknown indication
     Dosage: DOSE AND FREQUENCY UNKNOWN
     Route: 065

REACTIONS (7)
  - Sepsis [Recovered/Resolved]
  - Blood pressure abnormal [Recovered/Resolved]
  - Constipation [Recovered/Resolved]
  - Female genital tract fistula [Recovered/Resolved]
  - Malignant neoplasm progression [Recovered/Resolved]
  - Urogenital fistula [Recovered/Resolved]
  - Vaginal haemorrhage [Recovered/Resolved]
